FAERS Safety Report 5724454-3 (Version None)
Quarter: 2008Q2

REPORT INFORMATION
  Report Type: 
  Country: None (occurrence: None)
  Receive Date: 20080428
  Receipt Date: 20080417
  Transmission Date: 20081010
  Serious: Yes (Hospitalization)
  Sender: FDA-Public Use
  Company Number: GXKR2008ES03419

PATIENT
  Age: 43 Year
  Sex: Female

DRUGS (3)
  1. PAROXETINE HCL [Suspect]
     Indication: DEPRESSION
     Dosage: 20 MG, QD,
  2. ATENOLOL [Concomitant]
  3. SIMVASTATIN [Concomitant]

REACTIONS (6)
  - ANXIETY [None]
  - DRUG WITHDRAWAL SYNDROME [None]
  - DYSTONIA [None]
  - INSOMNIA [None]
  - NAUSEA [None]
  - TREATMENT NONCOMPLIANCE [None]
